FAERS Safety Report 24664794 (Version 1)
Quarter: 2024Q4

REPORT INFORMATION
  Report Type: Spontaneous
  Country: CN (occurrence: CN)
  Receive Date: 20241126
  Receipt Date: 20241126
  Transmission Date: 20250114
  Serious: Yes (Other)
  Sender: SANDOZ
  Company Number: CN-002147023-NVSC2024CN224421

PATIENT
  Age: 78 Year
  Sex: Male
  Weight: 70 kg

DRUGS (4)
  1. DEXAMETHASONE\TOBRAMYCIN [Suspect]
     Active Substance: DEXAMETHASONE\TOBRAMYCIN
     Indication: Cataract
     Dosage: 1.000 DRP, TID
     Route: 047
     Dates: start: 20241115, end: 20241118
  2. LEVOFLOXACIN [Concomitant]
     Active Substance: LEVOFLOXACIN
     Indication: Cataract
     Dosage: 1.000 DRP, TID
     Route: 047
     Dates: start: 20241115, end: 20241118
  3. PRANOPROFEN [Concomitant]
     Active Substance: PRANOPROFEN
     Indication: Cataract
     Dosage: 1.000 DRP, TID
     Route: 047
     Dates: start: 20241115, end: 20241118
  4. SODIUM HYALURONATE [Concomitant]
     Active Substance: HYALURONATE SODIUM
     Indication: Cataract
     Dosage: 1.000 DRP, TID
     Route: 047
     Dates: start: 20241115, end: 20241118

REACTIONS (1)
  - Migraine [Recovering/Resolving]

NARRATIVE: CASE EVENT DATE: 20241118
